FAERS Safety Report 24448812 (Version 2)
Quarter: 2025Q4

REPORT INFORMATION
  Report Type: Spontaneous
  Country: EU (occurrence: EU)
  Receive Date: 20241017
  Receipt Date: 20251010
  Transmission Date: 20260117
  Serious: Yes (Hospitalization, Other)
  Sender: CHEPLAPHARM
  Company Number: None

PATIENT
  Age: 53 Year
  Sex: Female
  Weight: 48 kg

DRUGS (52)
  1. CAPECITABINE [Suspect]
     Active Substance: CAPECITABINE
     Indication: Chemotherapy
     Dates: start: 202106, end: 202106
  2. CAPECITABINE [Suspect]
     Active Substance: CAPECITABINE
     Indication: Colorectal cancer metastatic
     Dates: start: 202106, end: 202106
  3. CAPECITABINE [Suspect]
     Active Substance: CAPECITABINE
     Indication: Chemotherapy
     Dates: start: 202106, end: 202110
  4. CAPECITABINE [Suspect]
     Active Substance: CAPECITABINE
     Indication: Colorectal cancer metastatic
     Dates: start: 202106, end: 202110
  5. OXALIPLATIN [Suspect]
     Active Substance: OXALIPLATIN
     Indication: Colorectal cancer metastatic
     Dates: start: 201711, end: 201801
  6. OXALIPLATIN [Suspect]
     Active Substance: OXALIPLATIN
     Indication: Colorectal cancer metastatic
     Dates: start: 202106, end: 202106
  7. IRINOTECAN [Suspect]
     Active Substance: IRINOTECAN
     Indication: Weight increased
     Dates: start: 201808, end: 201907
  8. IRINOTECAN [Suspect]
     Active Substance: IRINOTECAN
     Indication: Diarrhoea
     Dates: start: 201808, end: 201907
  9. IRINOTECAN [Suspect]
     Active Substance: IRINOTECAN
     Indication: Colorectal cancer metastatic
     Dates: start: 201808, end: 201907
  10. IRINOTECAN [Suspect]
     Active Substance: IRINOTECAN
     Indication: Weight increased
     Dates: start: 201812
  11. IRINOTECAN [Suspect]
     Active Substance: IRINOTECAN
     Indication: Diarrhoea
     Dates: start: 201812
  12. IRINOTECAN [Suspect]
     Active Substance: IRINOTECAN
     Indication: Colorectal cancer metastatic
     Dates: start: 201812
  13. FLUOROURACIL [Concomitant]
     Active Substance: FLUOROURACIL
     Indication: Colorectal cancer metastatic
     Dates: start: 201711, end: 201801
  14. FLUOROURACIL [Concomitant]
     Active Substance: FLUOROURACIL
     Indication: Metastases to liver
     Dates: start: 201711, end: 201801
  15. FLUOROURACIL [Concomitant]
     Active Substance: FLUOROURACIL
     Indication: Hypertension
     Dates: start: 201711, end: 201801
  16. FLUOROURACIL [Concomitant]
     Active Substance: FLUOROURACIL
     Indication: Colorectal cancer metastatic
     Dates: start: 201808, end: 201907
  17. FLUOROURACIL [Concomitant]
     Active Substance: FLUOROURACIL
     Indication: Metastases to liver
     Dates: start: 201808, end: 201907
  18. FLUOROURACIL [Concomitant]
     Active Substance: FLUOROURACIL
     Indication: Hypertension
     Dates: start: 201808, end: 201907
  19. FLUOROURACIL [Concomitant]
     Active Substance: FLUOROURACIL
     Indication: Colorectal cancer metastatic
     Dates: start: 201812
  20. FLUOROURACIL [Concomitant]
     Active Substance: FLUOROURACIL
     Indication: Metastases to liver
     Dates: start: 201812
  21. FLUOROURACIL [Concomitant]
     Active Substance: FLUOROURACIL
     Indication: Hypertension
     Dates: start: 201812
  22. AVASTIN [Concomitant]
     Active Substance: BEVACIZUMAB
     Indication: Hypertension
     Dates: start: 201711, end: 201801
  23. AVASTIN [Concomitant]
     Active Substance: BEVACIZUMAB
     Indication: Metastases to liver
     Dates: start: 201711, end: 201801
  24. AVASTIN [Concomitant]
     Active Substance: BEVACIZUMAB
     Indication: Condition aggravated
     Dates: start: 201711, end: 201801
  25. AVASTIN [Concomitant]
     Active Substance: BEVACIZUMAB
     Indication: Colorectal cancer metastatic
     Dates: start: 201711, end: 201801
  26. Tritace combi [Concomitant]
     Indication: Gastrointestinal toxicity
  27. Tritace combi [Concomitant]
     Indication: Hypertension
  28. Tritace combi [Concomitant]
     Indication: Headache
  29. Tritace combi [Concomitant]
     Indication: Weight increased
  30. OMEPRAZOLE [Concomitant]
     Active Substance: OMEPRAZOLE
     Indication: Hypertension
  31. LEUCOVORIN [Concomitant]
     Active Substance: LEUCOVORIN\LEUCOVORIN CALCIUM
     Indication: Colorectal cancer metastatic
     Dates: start: 201808
  32. LEUCOVORIN [Concomitant]
     Active Substance: LEUCOVORIN\LEUCOVORIN CALCIUM
     Indication: Colorectal cancer metastatic
     Dates: start: 201812
  33. Indap [Concomitant]
     Indication: Hypertension
  34. LEUCOVORIN [Concomitant]
     Active Substance: LEUCOVORIN\LEUCOVORIN CALCIUM
     Indication: Colorectal cancer metastatic
     Dates: start: 201711, end: 201801
  35. LEUCOVORIN [Concomitant]
     Active Substance: LEUCOVORIN\LEUCOVORIN CALCIUM
     Indication: Colorectal cancer metastatic
     Dates: start: 201808, end: 201907
  36. ASPIRIN\GLYCINE [Concomitant]
     Active Substance: ASPIRIN\GLYCINE
     Indication: Gastrointestinal toxicity
  37. ASPIRIN\GLYCINE [Concomitant]
     Active Substance: ASPIRIN\GLYCINE
     Indication: Dyspepsia
  38. ASPIRIN\GLYCINE [Concomitant]
     Active Substance: ASPIRIN\GLYCINE
     Indication: Hypertension
  39. ZALTRAP [Concomitant]
     Active Substance: ZIV-AFLIBERCEPT
     Indication: Diarrhoea
     Dates: start: 201808, end: 202002
  40. ZALTRAP [Concomitant]
     Active Substance: ZIV-AFLIBERCEPT
     Indication: Weight increased
     Dates: start: 201808, end: 202002
  41. ZALTRAP [Concomitant]
     Active Substance: ZIV-AFLIBERCEPT
     Indication: Proteinuria
     Dates: start: 201808, end: 202002
  42. ZALTRAP [Concomitant]
     Active Substance: ZIV-AFLIBERCEPT
     Indication: Metastases to liver
     Dates: start: 201808, end: 202002
  43. ZALTRAP [Concomitant]
     Active Substance: ZIV-AFLIBERCEPT
     Indication: Nausea
     Dates: start: 201808, end: 202002
  44. ZALTRAP [Concomitant]
     Active Substance: ZIV-AFLIBERCEPT
     Indication: Dyspepsia
     Dates: start: 201808, end: 202002
  45. ZALTRAP [Concomitant]
     Active Substance: ZIV-AFLIBERCEPT
     Indication: Colorectal cancer metastatic
     Dates: start: 201808, end: 202002
  46. ZALTRAP [Concomitant]
     Active Substance: ZIV-AFLIBERCEPT
     Indication: Diarrhoea
     Dates: start: 201907
  47. ZALTRAP [Concomitant]
     Active Substance: ZIV-AFLIBERCEPT
     Indication: Weight increased
     Dates: start: 201907
  48. ZALTRAP [Concomitant]
     Active Substance: ZIV-AFLIBERCEPT
     Indication: Proteinuria
     Dates: start: 201907
  49. ZALTRAP [Concomitant]
     Active Substance: ZIV-AFLIBERCEPT
     Indication: Metastases to liver
     Dates: start: 201907
  50. ZALTRAP [Concomitant]
     Active Substance: ZIV-AFLIBERCEPT
     Indication: Nausea
     Dates: start: 201907
  51. ZALTRAP [Concomitant]
     Active Substance: ZIV-AFLIBERCEPT
     Indication: Dyspepsia
     Dates: start: 201907
  52. ZALTRAP [Concomitant]
     Active Substance: ZIV-AFLIBERCEPT
     Indication: Colorectal cancer metastatic
     Dates: start: 201907

REACTIONS (7)
  - Neurotoxicity [Recovered/Resolved]
  - Disease progression [Unknown]
  - Muscle spasms [Recovered/Resolved]
  - Leukopenia [Unknown]
  - Neutropenia [Unknown]
  - Diarrhoea [Recovered/Resolved]
  - Palmar-plantar erythrodysaesthesia syndrome [Recovered/Resolved]

NARRATIVE: CASE EVENT DATE: 20210601
